FAERS Safety Report 10590640 (Version 1)
Quarter: 2014Q4

REPORT INFORMATION
  Report Type: Spontaneous
  Country: SE (occurrence: SE)
  Receive Date: 20141118
  Receipt Date: 20141118
  Transmission Date: 20150529
  Serious: Yes (Hospitalization)
  Sender: FDA-Public Use
  Company Number: SE-ROCHE-1489958

PATIENT
  Age: 71 Year
  Sex: Male

DRUGS (11)
  1. SALAZOPYRIN [Concomitant]
     Active Substance: SULFASALAZINE
     Route: 065
  2. TROMBYL [Concomitant]
     Active Substance: ASPIRIN
     Route: 065
  3. XELODA [Suspect]
     Active Substance: CAPECITABINE
     Route: 048
     Dates: start: 20140512, end: 20140526
  4. FRAGMIN [Concomitant]
     Active Substance: DALTEPARIN SODIUM
     Route: 065
  5. XELODA [Suspect]
     Active Substance: CAPECITABINE
     Route: 048
     Dates: start: 20140421, end: 20140505
  6. INOLAXOL [Concomitant]
     Route: 065
  7. XELODA [Suspect]
     Active Substance: CAPECITABINE
     Route: 048
     Dates: start: 20140331, end: 20140414
  8. OMEPRAZOL [Concomitant]
     Active Substance: OMEPRAZOLE
     Route: 065
  9. ENALAPRIL [Concomitant]
     Active Substance: ENALAPRIL
     Route: 065
  10. XELODA [Suspect]
     Active Substance: CAPECITABINE
     Indication: COLON CANCER
     Route: 048
     Dates: start: 20140310, end: 20140324
  11. DAKTACORT [Concomitant]
     Active Substance: HYDROCORTISONE\MICONAZOLE NITRATE
     Route: 065

REACTIONS (3)
  - Diarrhoea [Unknown]
  - Cough [Unknown]
  - Epiglottitis [Unknown]

NARRATIVE: CASE EVENT DATE: 201405
